FAERS Safety Report 14934321 (Version 2)
Quarter: 2018Q2

REPORT INFORMATION
  Report Type: Spontaneous
  Country: DE (occurrence: DE)
  Receive Date: 20180524
  Receipt Date: 20180626
  Transmission Date: 20180711
  Serious: Yes (Hospitalization)
  Sender: FDA-Public Use
  Company Number: DE-GLENMARK PHARMACEUTICALS-2018GMK035669

PATIENT

DRUGS (1)
  1. GLENTEK 50MG FILMTABLETTEN [Suspect]
     Active Substance: RILUZOLE
     Indication: AMYOTROPHIC LATERAL SCLEROSIS
     Dosage: UNK, MORE THAN 3 MONTHS
     Route: 065
     Dates: start: 201801

REACTIONS (1)
  - Hospitalisation [Unknown]
